FAERS Safety Report 6004343-X (Version None)
Quarter: 2008Q4

REPORT INFORMATION
  Report Type: 
  Country: None (occurrence: None)
  Receive Date: 20081216
  Receipt Date: 20081202
  Transmission Date: 20090506
  Serious: Yes (Death, Other)
  Sender: FDA-Public Use
  Company Number: AT-BAYER-AT-2007-001544

PATIENT
  Age: 63 Year
  Sex: Female

DRUGS (6)
  1. CAMPATH [Suspect]
     Indication: CHRONIC LYMPHOCYTIC LEUKAEMIA
     Dosage: UNIT DOSE: 3 MG
     Dates: start: 20040210, end: 20040210
  2. CAMPATH [Suspect]
     Dosage: UNIT DOSE: 10 MG
     Dates: start: 20040211, end: 20040211
  3. CAMPATH [Suspect]
     Dosage: UNIT DOSE: 30 MG
     Dates: start: 20040212, end: 20040212
  4. CAMPATH [Suspect]
     Dosage: UNIT DOSE: 30 MG
     Dates: start: 20040213
  5. VALACYCLOVIR HCL [Concomitant]
     Indication: INFECTION PROPHYLAXIS
     Route: 065
  6. SULFAMETHOXAZOLE AND TRIMETHOPRIM [Concomitant]
     Indication: INFECTION PROPHYLAXIS
     Route: 065

REACTIONS (2)
  - CHRONIC LYMPHOCYTIC LEUKAEMIA [None]
  - MALIGNANT MELANOMA [None]
